FAERS Safety Report 15806201 (Version 2)
Quarter: 2019Q1

REPORT INFORMATION
  Report Type: Spontaneous
  Country: US (occurrence: US)
  Receive Date: 20190110
  Receipt Date: 20190212
  Transmission Date: 20190417
  Serious: No
  Sender: FDA-Public Use
  Company Number: US-PFIZER INC-2019012329

PATIENT
  Age: 77 Year
  Sex: Female

DRUGS (1)
  1. NITROGLYCERIN. [Suspect]
     Active Substance: NITROGLYCERIN
     Dosage: UNK

REACTIONS (3)
  - Product use issue [Unknown]
  - Drug hypersensitivity [Unknown]
  - Hypotension [Unknown]

NARRATIVE: CASE EVENT DATE: 20150122
